FAERS Safety Report 5109271-X (Version None)
Quarter: 2006Q3

REPORT INFORMATION
  Report Type: 
  Country: None (occurrence: None)
  Receive Date: 20060920
  Receipt Date: 20060913
  Transmission Date: 20061208
  Serious: Yes (Other)
  Sender: FDA-Public Use
  Company Number: FR-MERCK-0609FRA00033

PATIENT
  Age: 65 Year
  Sex: Male

DRUGS (6)
  1. CANCIDAS [Suspect]
     Indication: SYSTEMIC CANDIDA
     Route: 042
     Dates: start: 20060909, end: 20060909
  2. CANCIDAS [Suspect]
     Route: 042
     Dates: start: 20060910
  3. PIPERACILLIN SODIUM AND TAZOBACTAM SODIUM [Concomitant]
     Route: 042
     Dates: start: 20060902, end: 20060915
  4. MIDAZOLAM HYDROCHLORIDE [Concomitant]
     Route: 042
  5. FUROSEMIDE [Concomitant]
     Route: 042
     Dates: end: 20060901
  6. HYDROCORTISONE HEMISUCCINATE [Concomitant]
     Route: 042
     Dates: start: 20060910, end: 20060912

REACTIONS (4)
  - BLOOD CALCIUM DECREASED [None]
  - BLOOD SODIUM DECREASED [None]
  - DRUG INEFFECTIVE [None]
  - RENAL TUBULAR DISORDER [None]
